FAERS Safety Report 9334892 (Version 1)
Quarter: 2013Q2

REPORT INFORMATION
  Report Type: Spontaneous
  Country: US (occurrence: US)
  Receive Date: 20130606
  Receipt Date: 20130606
  Transmission Date: 20140414
  Serious: No
  Sender: FDA-Public Use
  Company Number: US-AMGEN-USASP2013024277

PATIENT
  Age: 82 Year
  Sex: Female
  Weight: 51.7 kg

DRUGS (7)
  1. CALCIUM + VITAMIN D                /01483701/ [Concomitant]
     Dosage: UNK UNK, QD
     Route: 048
  2. VITAMIN D                          /00107901/ [Concomitant]
     Dosage: 1000 IU, QD
     Route: 048
  3. LISINOPRIL [Concomitant]
     Indication: HYPERTENSION
     Dosage: 10 MG, QD
     Route: 048
  4. PROLIA [Suspect]
     Indication: OSTEOPOROSIS POSTMENOPAUSAL
     Dosage: 60 MG, UNK
     Route: 058
     Dates: start: 20121205
  5. LEXAPRO [Concomitant]
     Indication: ANXIETY
     Dosage: 20 MG, QD
     Route: 048
  6. LEXAPRO [Concomitant]
     Indication: DEPRESSION
  7. XANAX [Concomitant]
     Indication: ANXIETY
     Dosage: 0.25 MG, BID
     Route: 048

REACTIONS (2)
  - Back pain [Not Recovered/Not Resolved]
  - Pain [Not Recovered/Not Resolved]
